FAERS Safety Report 7887905-4 (Version None)
Quarter: 2011Q4

REPORT INFORMATION
  Report Type: 
  Country: None (occurrence: None)
  Receive Date: 20111103
  Receipt Date: 20111025
  Transmission Date: 20120403
  Serious: Yes (Life-Threatening, Disabling)
  Sender: FDA-Public Use
  Company Number: BE-CELGENEUS-013-21880-11101872

PATIENT
  Sex: Male
  Weight: 89 kg

DRUGS (7)
  1. CYTARABINE [Suspect]
  2. CYTARABINE [Suspect]
     Indication: ACUTE MYELOID LEUKAEMIA
     Route: 041
     Dates: start: 20110907
  3. REVLIMID [Suspect]
     Indication: ACUTE MYELOID LEUKAEMIA
     Dosage: 15 MILLIGRAM
     Route: 048
     Dates: start: 20110907, end: 20110922
  4. DAUNORUBICIN HCL [Suspect]
     Indication: ACUTE MYELOID LEUKAEMIA
     Route: 041
     Dates: start: 20110907
  5. REVLIMID [Suspect]
  6. FRAXIPARINE [Concomitant]
     Indication: ANTICOAGULANT THERAPY
     Route: 058
     Dates: start: 20110906, end: 20111009
  7. DAUNORUBICIN HCL [Suspect]

REACTIONS (2)
  - RENAL FAILURE ACUTE [None]
  - CARDIAC TAMPONADE [None]
